FAERS Safety Report 17239720 (Version 2)
Quarter: 2020Q1

REPORT INFORMATION
  Report Type: Spontaneous
  Country: BR (occurrence: BR)
  Receive Date: 20200106
  Receipt Date: 20200220
  Transmission Date: 20200409
  Serious: Yes (Other)
  Sender: FDA-Public Use
  Company Number: BR-ABBVIE-20P-020-3220356-00

PATIENT
  Age: 2 Year
  Sex: Male
  Weight: 9 kg

DRUGS (3)
  1. DEPAKENE [Suspect]
     Active Substance: VALPROIC ACID
     Indication: SEIZURE
     Dosage: STARTED WHEN HE WAS 1 YEAR AND 1 MONTH OLD,4ML OF DEPAKENE+2 ML OF WATER+FOOD THICKENER
     Route: 065
     Dates: end: 202001
  2. DEPAKENE [Suspect]
     Active Substance: VALPROIC ACID
     Dosage: DAILY DOSE 8 ML, STARTED WHEN PATIENT WAS 1 YEAR AND 1 MONTH OLD
     Route: 065
     Dates: start: 20200102
  3. VODSSO [Suspect]
     Active Substance: VALPROIC ACID
     Indication: PRODUCT USED FOR UNKNOWN INDICATION
     Dosage: SOMETIMES TAKING DEPAKENE, ELSE VODSSO. DD 8ML
     Route: 065

REACTIONS (7)
  - Weight increased [Unknown]
  - Seizure [Recovered/Resolved]
  - Product use issue [Unknown]
  - Aspiration [Unknown]
  - Seizure [Unknown]
  - Abdominal pain [Recovered/Resolved]
  - Wrong technique in product usage process [Unknown]

NARRATIVE: CASE EVENT DATE: 202002
